FAERS Safety Report 7964940-9 (Version None)
Quarter: 2011Q4

REPORT INFORMATION
  Report Type: 
  Country: None (occurrence: None)
  Receive Date: 20111208
  Receipt Date: 20111208
  Transmission Date: 20120403
  Serious: Yes (Other)
  Sender: FDA-Public Use
  Company Number: None

PATIENT
  Sex: Male
  Weight: 99.79 kg

DRUGS (2)
  1. LIPITOR [Suspect]
     Indication: HYPERLIPIDAEMIA
     Dosage: 10 MG
     Route: 048
     Dates: start: 20050101, end: 20111231
  2. ZOCOR [Concomitant]
     Dosage: 10 MG
     Route: 048
     Dates: start: 20000101, end: 20050101

REACTIONS (4)
  - TINNITUS [None]
  - ANHEDONIA [None]
  - IRRITABILITY [None]
  - ANGER [None]
